FAERS Safety Report 9574965 (Version 2)
Quarter: 2014Q1

REPORT INFORMATION
  Report Type: Spontaneous
  Country: FR (occurrence: FR)
  Receive Date: 20131001
  Receipt Date: 20140305
  Transmission Date: 20141002
  Serious: Yes (Hospitalization)
  Sender: FDA-Public Use
  Company Number: FR-ASTRAZENECA-2013SE71909

PATIENT
  Age: 32719 Day
  Sex: Male

DRUGS (10)
  1. CRESTOR [Suspect]
     Route: 048
     Dates: end: 20130524
  2. DAFALGAN [Suspect]
     Route: 048
     Dates: end: 20130524
  3. AUGMENTIN [Suspect]
     Indication: UROGENITAL INFECTION BACTERIAL
     Route: 048
     Dates: start: 20130513, end: 20130523
  4. LAMALINE [Suspect]
     Route: 048
     Dates: end: 20130524
  5. LOPRIL [Suspect]
     Route: 048
     Dates: end: 20130524
  6. AERIUS [Suspect]
     Route: 048
     Dates: end: 20130524
  7. ATARAX [Suspect]
     Route: 048
     Dates: end: 20130524
  8. LASILIX SPECIAL [Concomitant]
     Route: 048
     Dates: end: 20130524
  9. LASILIX SPECIAL [Concomitant]
     Route: 048
  10. KAYEXALATE [Concomitant]
     Route: 048

REACTIONS (3)
  - Cholestasis [Recovering/Resolving]
  - General physical health deterioration [Recovered/Resolved]
  - Inflammation [Recovered/Resolved]
